FAERS Safety Report 10560686 (Version 1)
Quarter: 2014Q4

REPORT INFORMATION
  Report Type: Spontaneous
  Country: US (occurrence: None)
  Receive Date: 20141031
  Receipt Date: 20141031
  Transmission Date: 20150529
  Serious: Yes (Other)
  Sender: FDA-Public Use
  Company Number: None

PATIENT
  Age: 58 Year
  Sex: Female
  Weight: 152 kg

DRUGS (1)
  1. DOLASETRON MESYLATE [Suspect]
     Active Substance: DOLASETRON MESYLATE
     Route: 042
     Dates: start: 20140109

REACTIONS (5)
  - Chest discomfort [None]
  - Rash [None]
  - Throat tightness [None]
  - Lip swelling [None]
  - Muscle tightness [None]

NARRATIVE: CASE EVENT DATE: 20140109
